FAERS Safety Report 16431296 (Version 2)
Quarter: 2019Q3

REPORT INFORMATION
  Report Type: Report from Study
  Country: US (occurrence: US)
  Receive Date: 20190614
  Receipt Date: 20190830
  Transmission Date: 20191004
  Serious: Yes (Hospitalization, Other)
  Sender: FDA-Public Use
  Company Number: US-BRISTOL-MYERS SQUIBB COMPANY-BMS-2019-056631

PATIENT
  Age: 41 Year
  Sex: Female
  Weight: 49 kg

DRUGS (6)
  1. TRAMADOL. [Concomitant]
     Active Substance: TRAMADOL
     Indication: CANCER PAIN
     Dosage: 50 MILLIGRAM
     Route: 065
     Dates: start: 20190125
  2. CHOLECALCIFEROL [Concomitant]
     Active Substance: CHOLECALCIFEROL
     Indication: PRODUCT USED FOR UNKNOWN INDICATION
     Dosage: 1000 UNIT
     Route: 065
     Dates: start: 20190125
  3. ALPRAZOLAM. [Concomitant]
     Active Substance: ALPRAZOLAM
     Indication: INSOMNIA
     Dosage: 0.5 MILLIGRAM
     Route: 065
     Dates: start: 20190125
  4. COMPAZINE [Concomitant]
     Active Substance: PROCHLORPERAZINE MALEATE
     Indication: NAUSEA
     Dosage: 5 MILLIGRAM
     Route: 065
     Dates: start: 20180314
  5. RP1 [Suspect]
     Active Substance: SERINE/THREONINE-PROTEIN KINASE 19
     Indication: COLON CANCER
     Dosage: 1 X 10E6 PFU/ML, A TOTAL VOLUME OF 3 ML, Q2WK
     Route: 036
     Dates: start: 20190416, end: 20190514
  6. NIVOLUMAB [Suspect]
     Active Substance: NIVOLUMAB
     Indication: COLON CANCER
     Dosage: 240 MILLIGRAM, Q2WK
     Route: 042
     Dates: start: 20190430, end: 20190514

REACTIONS (1)
  - Device occlusion [Recovered/Resolved]

NARRATIVE: CASE EVENT DATE: 20190529
